FAERS Safety Report 16442425 (Version 1)
Quarter: 2019Q2

REPORT INFORMATION
  Report Type: Spontaneous
  Country: US (occurrence: US)
  Receive Date: 20190617
  Receipt Date: 20190617
  Transmission Date: 20190711
  Serious: No
  Sender: FDA-Public Use
  Company Number: US-SUNOVION-2019SUN002457

PATIENT
  Sex: Female

DRUGS (1)
  1. LATUDA [Suspect]
     Active Substance: LURASIDONE HYDROCHLORIDE
     Indication: DELUSION
     Route: 048

REACTIONS (8)
  - Pyrexia [Unknown]
  - Insomnia [Unknown]
  - Diarrhoea [Unknown]
  - Hypertension [Unknown]
  - Heart rate abnormal [Unknown]
  - Pollakiuria [Unknown]
  - Abdominal discomfort [Unknown]
  - Off label use [Unknown]
